FAERS Safety Report 10089922 (Version 1)
Quarter: 2014Q2

REPORT INFORMATION
  Report Type: Spontaneous
  Country: CA (occurrence: CA)
  Receive Date: 20140421
  Receipt Date: 20140421
  Transmission Date: 20141212
  Serious: Yes (Other)
  Sender: FDA-Public Use
  Company Number: CA-TEVA-476491USA

PATIENT
  Sex: Male

DRUGS (2)
  1. TEVA-FUROSEMIDE [Suspect]
     Route: 048
  2. NOVO-PREDNISONE [Suspect]
     Route: 048

REACTIONS (2)
  - Coeliac disease [Not Recovered/Not Resolved]
  - Malaise [Unknown]
